FAERS Safety Report 7445807-1 (Version None)
Quarter: 2011Q2

REPORT INFORMATION
  Report Type: 
  Country: None (occurrence: None)
  Receive Date: 20110429
  Receipt Date: 20110419
  Transmission Date: 20111010
  Serious: Yes (Hospitalization, Other)
  Sender: FDA-Public Use
  Company Number: CA-ABBOTT-11P-028-0705591-01

PATIENT
  Sex: Female
  Weight: 47.216 kg

DRUGS (16)
  1. PROTYLOL [Concomitant]
     Indication: ABDOMINAL PAIN
     Route: 048
     Dates: start: 20091130
  2. ACETAMINOPHEN [Concomitant]
     Indication: PROCEDURAL PAIN
     Route: 048
     Dates: start: 20101222
  3. VITAMIN D [Concomitant]
     Indication: CROHN'S DISEASE
     Route: 048
     Dates: start: 20101223
  4. HUMIRA [Suspect]
     Route: 058
     Dates: end: 20101206
  5. DILAUDID [Concomitant]
     Indication: PROCEDURAL PAIN
     Dosage: 2-4 MG
     Route: 048
     Dates: start: 20101230
  6. AMOXICILLIN AND CLAVULANATE POTASSIUM [Concomitant]
     Indication: PERITONITIS BACTERIAL
     Route: 048
     Dates: start: 20110114
  7. FERROUS SULFATE TAB [Concomitant]
     Indication: IRON DEFICIENCY
     Route: 048
     Dates: start: 20101228
  8. HUMIRA [Suspect]
     Route: 058
  9. LOPERAMIDE [Concomitant]
     Indication: COLECTOMY TOTAL
  10. HUMIRA [Suspect]
     Dates: start: 20110310
  11. LOPERAMIDE [Concomitant]
     Indication: DIARRHOEA
     Route: 048
     Dates: start: 20000901
  12. VANCOMYCIN [Concomitant]
     Indication: PERITONITIS BACTERIAL
  13. CIPRO [Concomitant]
     Indication: PERITONITIS BACTERIAL
     Route: 048
     Dates: start: 20110112
  14. TYLENOL EXTRA-STRENGTH [Concomitant]
     Indication: HEADACHE
     Route: 048
     Dates: start: 20090913
  15. HUMIRA [Suspect]
     Indication: CROHN'S DISEASE
     Route: 058
     Dates: start: 20090817, end: 20090817
  16. VANCOMYCIN [Concomitant]
     Indication: CLOSTRIDIUM DIFFICILE COLITIS
     Route: 048
     Dates: start: 20101226

REACTIONS (2)
  - POSTOPERATIVE WOUND INFECTION [None]
  - ENTEROCUTANEOUS FISTULA [None]
